FAERS Safety Report 13702715 (Version 1)
Quarter: 2017Q2

REPORT INFORMATION
  Report Type: Spontaneous
  Country: US (occurrence: US)
  Receive Date: 20170629
  Receipt Date: 20170629
  Transmission Date: 20170830
  Serious: Yes (Other)
  Sender: FDA-Public Use
  Company Number: US-JNJFOC-PRIUS15970

PATIENT
  Age: 20 Year
  Sex: Male

DRUGS (2)
  1. HALDOL [Suspect]
     Active Substance: HALOPERIDOL
     Indication: DEPRESSION
     Route: 048
  2. PROZAC [Concomitant]
     Active Substance: FLUOXETINE HYDROCHLORIDE
     Route: 065

REACTIONS (4)
  - Dystonia [Not Recovered/Not Resolved]
  - Bruxism [Not Recovered/Not Resolved]
  - Dyskinesia [Not Recovered/Not Resolved]
  - Psychotic disorder [Unknown]

NARRATIVE: CASE EVENT DATE: 19930115
